FAERS Safety Report 24130192 (Version 1)
Quarter: 2024Q3

REPORT INFORMATION
  Report Type: Report from Study
  Country: GB (occurrence: GB)
  Receive Date: 20240724
  Receipt Date: 20240724
  Transmission Date: 20241017
  Serious: Yes (Other)
  Sender: SANDOZ
  Company Number: GB-002147023-NVSC2020GB319407

PATIENT
  Sex: Male

DRUGS (3)
  1. OMNITROPE [Suspect]
     Active Substance: SOMATROPIN
     Indication: Renal disorder
     Dosage: 1.6 MG, QD (DAILY AT NIGHT)
     Route: 058
     Dates: start: 20150803
  2. OMNITROPE [Suspect]
     Active Substance: SOMATROPIN
     Indication: Hypopituitarism
     Dosage: 1.8 MG, QD (DAILY AT NIGHT)
     Route: 058
  3. OMNITROPE [Suspect]
     Active Substance: SOMATROPIN
     Dosage: 2 MG, QD (STRENGTH-15MG/1.5ML SOLUTION FOR INJECTION CARTRIDGES )
     Route: 058

REACTIONS (2)
  - Renal disorder [Unknown]
  - Product dose omission issue [Unknown]
